FAERS Safety Report 17829802 (Version 2)
Quarter: 2020Q2

REPORT INFORMATION
  Report Type: Spontaneous
  Country: MY (occurrence: MY)
  Receive Date: 20200527
  Receipt Date: 20200612
  Transmission Date: 20200714
  Serious: Yes (Other)
  Sender: FDA-Public Use
  Company Number: MY-MACLEODS PHARMACEUTICALS US LTD-MAC2020026596

PATIENT

DRUGS (5)
  1. OLANZAPINE. [Suspect]
     Active Substance: OLANZAPINE
     Dosage: 5 MILLIGRAM
     Route: 065
  2. RIVASTIGMINE. [Suspect]
     Active Substance: RIVASTIGMINE
     Dosage: 6 MILLIGRAM, BID
     Route: 065
  3. RIVASTIGMINE. [Suspect]
     Active Substance: RIVASTIGMINE
     Dosage: 5 MILLIGRAM, QD, THREE MONTHS LATER AFTER OLANZEPINE WITHDRAWN, TRANSDERMAL PATCH
     Route: 062
  4. RIVASTIGMINE. [Suspect]
     Active Substance: RIVASTIGMINE
     Indication: DEMENTIA
     Dosage: 3 MILLIGRAM, BID
     Route: 048
  5. OLANZAPINE. [Suspect]
     Active Substance: OLANZAPINE
     Indication: DELUSION
     Dosage: 2.5 MILLIGRAM, QD
     Route: 065

REACTIONS (2)
  - Delusion [Unknown]
  - Pleurothotonus [Recovered/Resolved]
